FAERS Safety Report 19260091 (Version 1)
Quarter: 2021Q2

REPORT INFORMATION
  Report Type: Spontaneous
  Country: US (occurrence: US)
  Receive Date: 20210514
  Receipt Date: 20210514
  Transmission Date: 20210717
  Serious: Yes (Other)
  Sender: FDA-Public Use
  Company Number: US-PFIZER INC-2021522413

PATIENT
  Age: 67 Year
  Sex: Female

DRUGS (2)
  1. CELEBREX [Suspect]
     Active Substance: CELECOXIB
     Dosage: UNK UNK, 2X/DAY
  2. CELEBREX [Suspect]
     Active Substance: CELECOXIB
     Dosage: UNK, 1X/DAY

REACTIONS (13)
  - Crying [Unknown]
  - Intentional product misuse [Unknown]
  - Inability to afford medication [Unknown]
  - Oral herpes [Unknown]
  - Movement disorder [Unknown]
  - Middle insomnia [Unknown]
  - Rash [Unknown]
  - Gait disturbance [Unknown]
  - Drug hypersensitivity [Unknown]
  - Swelling [Unknown]
  - Impaired work ability [Unknown]
  - Blood pressure increased [Unknown]
  - Pruritus [Unknown]
